FAERS Safety Report 10563265 (Version 1)
Quarter: 2014Q4

REPORT INFORMATION
  Report Type: Spontaneous
  Country: US (occurrence: US)
  Receive Date: 20141104
  Receipt Date: 20141104
  Transmission Date: 20150529
  Serious: No
  Sender: FDA-Public Use
  Company Number: US-PFIZER INC-2014303728

PATIENT
  Age: 57 Year
  Sex: Male
  Weight: 108.39 kg

DRUGS (14)
  1. SYMBICORT [Concomitant]
     Active Substance: BUDESONIDE\FORMOTEROL FUMARATE DIHYDRATE
     Indication: DYSPNOEA
     Dosage: 160-4.5 MCG
  2. NAPROXEN. [Concomitant]
     Active Substance: NAPROXEN
     Indication: PAIN
     Dosage: 500 MG, DAILY (250 MG TWO TABLETS)
     Route: 048
  3. SPIRIVA [Concomitant]
     Active Substance: TIOTROPIUM BROMIDE MONOHYDRATE
     Indication: DYSPNOEA
     Dosage: 18 MUG, UNK
  4. LYRICA [Suspect]
     Active Substance: PREGABALIN
     Indication: FIBROMYALGIA
     Dosage: 75 MG, TWICE A DAY
     Route: 048
     Dates: start: 20141008, end: 20141015
  5. ENBREL [Suspect]
     Active Substance: ETANERCEPT
     Indication: RHEUMATOID ARTHRITIS
     Dosage: 50 MG, WEEKLY
     Dates: start: 2014
  6. EMBOL [Concomitant]
     Dosage: UNK
  7. PROVENTIL /OLD FORM/ [Concomitant]
     Dosage: UNK, AS NECESSARY
  8. MICROZIDE [Concomitant]
     Active Substance: HYDROCHLOROTHIAZIDE
     Dosage: 12.5 MG, ONCE A DAY
     Route: 048
  9. METHOTREXATE [Concomitant]
     Active Substance: METHOTREXATE
     Indication: RHEUMATOID ARTHRITIS
     Dosage: 25 MG, WEEKLY
  10. FOLIC ACID. [Concomitant]
     Active Substance: FOLIC ACID
     Dosage: 2 TABLETS; DAILY
     Route: 048
  11. ASPIRIN. [Concomitant]
     Active Substance: ASPIRIN
     Dosage: 81 MG, ONCE A DAY
     Route: 048
  12. SINGULAIR [Concomitant]
     Active Substance: MONTELUKAST SODIUM
     Indication: DYSPNOEA
     Dosage: 10 MG, ONCE A DAY
     Route: 048
  13. NORVASC [Concomitant]
     Active Substance: AMLODIPINE BESYLATE
     Indication: HYPERTENSION
     Dosage: 10 MG, ONCE A DAY
     Route: 048
  14. PROZAC [Concomitant]
     Active Substance: FLUOXETINE HYDROCHLORIDE
     Indication: DEPRESSION
     Dosage: 20 MG, ONCE A DAY
     Route: 048

REACTIONS (4)
  - Injection site erythema [Unknown]
  - Injection site pruritus [Unknown]
  - Anger [Not Recovered/Not Resolved]
  - Pain [Not Recovered/Not Resolved]

NARRATIVE: CASE EVENT DATE: 20141015
